FAERS Safety Report 4958367-1 (Version None)
Quarter: 2006Q1

REPORT INFORMATION
  Report Type: 
  Country: None (occurrence: None)
  Receive Date: 20060201
  Receipt Date: 20051018
  Transmission Date: 20060701
  Serious: No
  Sender: FDA-Public Use
  Company Number: 2005PV004006

PATIENT
  Age: 61 Year
  Sex: Female
  Weight: 112.4921 kg

DRUGS (6)
  1. BYETTA [Suspect]
     Indication: DIABETES MELLITUS NON-INSULIN-DEPENDENT
     Dosage: 5 MCG;BID;SC
     Route: 058
     Dates: start: 20051017
  2. GLUCOTROL [Concomitant]
  3. TENORMIN [Concomitant]
  4. CAPOTEN [Concomitant]
  5. NEXIUM [Concomitant]
  6. AMBIEN [Concomitant]

REACTIONS (8)
  - BLOOD GLUCOSE DECREASED [None]
  - CHILLS [None]
  - DYSGEUSIA [None]
  - HEAD DISCOMFORT [None]
  - HEADACHE [None]
  - NAUSEA [None]
  - TINNITUS [None]
  - VOMITING [None]
